FAERS Safety Report 23429018 (Version 1)
Quarter: 2024Q1

REPORT INFORMATION
  Report Type: Report from Study
  Country: US (occurrence: US)
  Receive Date: 20240122
  Receipt Date: 20240122
  Transmission Date: 20240410
  Serious: Yes (Other)
  Sender: FDA-Public Use
  Company Number: US-Pharmaand-2024000009

PATIENT
  Age: 56 Year
  Sex: Female

DRUGS (1)
  1. RUCAPARIB [Suspect]
     Active Substance: RUCAPARIB
     Indication: Ovarian cancer
     Dosage: 600 MG TWICE DAILY
     Route: 048
     Dates: start: 20220620

REACTIONS (1)
  - Surgery [Unknown]

NARRATIVE: CASE EVENT DATE: 20231219
